FAERS Safety Report 24662581 (Version 1)
Quarter: 2024Q4

REPORT INFORMATION
  Report Type: Report from Study
  Country: MX (occurrence: MX)
  Receive Date: 20241126
  Receipt Date: 20241126
  Transmission Date: 20250115
  Serious: Yes (Hospitalization, Disabling, Other)
  Sender: ABBVIE
  Company Number: MX-ABBOTT-2024A-1392043

PATIENT
  Sex: Female

DRUGS (7)
  1. EPIVAL [Suspect]
     Active Substance: DIVALPROEX SODIUM
     Indication: Epilepsy
     Dosage: 1 TABLET AT NIGHT (250 MG) INSTEAD OF THE 500 MG
     Route: 048
  2. EPIVAL [Suspect]
     Active Substance: DIVALPROEX SODIUM
     Indication: Epilepsy
     Dosage: LATER FROM 6 TO 17 YEARS OLD SHE WAS PRESCRIBED ONE TABLET AT NIGHT
     Route: 048
  3. EPIVAL [Suspect]
     Active Substance: DIVALPROEX SODIUM
     Indication: Epilepsy
     Dosage: 1 TABLET IN THE MORNING
     Route: 048
  4. EPIVAL [Suspect]
     Active Substance: DIVALPROEX SODIUM
     Indication: Epilepsy
     Dosage: 3TAB A DAY, 1 IN THE MORNING, 1 IN THE AFTERNOON AND 1 AT NIGHT, WHILE PATIENT 6 YEARS OLD
     Route: 048
  5. EPIVAL [Suspect]
     Active Substance: DIVALPROEX SODIUM
     Indication: Epilepsy
     Dosage: 2 TABLETS A DAY, ONE IN THE MORNING AND ONE AT NIGHT
     Route: 048
     Dates: start: 20241015
  6. OXCARBAZEPINE [Concomitant]
     Active Substance: OXCARBAZEPINE
     Indication: Product used for unknown indication
     Dosage: 1 TABLET OF OXCARBAZEPINE AT NIGHT 600 MG AND ANOTHER IN THE MORNING OF 300 MG
  7. OXCARBAZEPINE [Concomitant]
     Active Substance: OXCARBAZEPINE
     Indication: Product used for unknown indication
     Dosage: 1 TABLET OF OXCARBAZEPINE AT NIGHT 600 MG AND ANOTHER IN THE MORNING OF 300 MG

REACTIONS (13)
  - Condition aggravated [Unknown]
  - Speech disorder [Unknown]
  - General physical health deterioration [Unknown]
  - Illness [Unknown]
  - Scoliosis [Unknown]
  - Hypersomnia [Unknown]
  - Nervous system disorder [Unknown]
  - Growth retardation [Unknown]
  - Limb asymmetry [Unknown]
  - Musculoskeletal stiffness [Unknown]
  - Paralysis [Unknown]
  - Epilepsy [Unknown]
  - Mobility decreased [Unknown]
